FAERS Safety Report 7590143-6 (Version None)
Quarter: 2011Q3

REPORT INFORMATION
  Report Type: 
  Country: None (occurrence: None)
  Receive Date: 20110705
  Receipt Date: 20110627
  Transmission Date: 20111222
  Serious: Yes (Other)
  Sender: FDA-Public Use
  Company Number: B0730634A

PATIENT
  Sex: Female
  Weight: 65 kg

DRUGS (1)
  1. CLOBETASOL PROPIONATE [Suspect]
     Indication: LICHEN SCLEROSUS
     Route: 067
     Dates: start: 20030101, end: 20110501

REACTIONS (1)
  - OSTEONECROSIS [None]
